FAERS Safety Report 24729254 (Version 1)
Quarter: 2024Q4

REPORT INFORMATION
  Report Type: Report from Study
  Country: CA (occurrence: CA)
  Receive Date: 20241213
  Receipt Date: 20241213
  Transmission Date: 20250115
  Serious: Yes (Life-Threatening)
  Sender: REGENERON
  Company Number: CA-BAYER-2024A175839

PATIENT
  Age: 92 Year
  Sex: Female

DRUGS (1)
  1. EYLEA [Suspect]
     Active Substance: AFLIBERCEPT
     Indication: Age-related macular degeneration
     Dosage: INJECTION 2 MG, SOLUTION FOR INJECTION, 40 MG/ML
     Dates: start: 20160627, end: 20240918

REACTIONS (1)
  - Adverse event [Unknown]
